FAERS Safety Report 4790338-0 (Version None)
Quarter: 2005Q4

REPORT INFORMATION
  Report Type: 
  Country: None (occurrence: None)
  Receive Date: 20051006
  Receipt Date: 20050928
  Transmission Date: 20060501
  Serious: Yes (Other)
  Sender: FDA-Public Use
  Company Number: PHEH2005US10829

PATIENT
  Age: 63 Year
  Sex: Male

DRUGS (5)
  1. DIOVAN [Suspect]
     Indication: HYPERTENSION
     Dosage: 1/2 TAB DAILY
     Route: 048
     Dates: start: 20050718
  2. DIOVAN [Suspect]
     Dosage: 2 TABS 160 MG DAILY
     Dates: end: 20050930
  3. ACE INHIBITOR NOS [Concomitant]
     Dosage: UNK, UNK
     Dates: start: 20050101
  4. ALTACE [Concomitant]
  5. PREDNISONE [Concomitant]

REACTIONS (1)
  - SWOLLEN TONGUE [None]
